FAERS Safety Report 5082866-8 (Version None)
Quarter: 2006Q3

REPORT INFORMATION
  Report Type: 
  Country: None (occurrence: None)
  Receive Date: 20060720
  Receipt Date: 20060327
  Transmission Date: 20061208
  Serious: Yes (Hospitalization)
  Sender: FDA-Public Use
  Company Number: 2006044328

PATIENT
  Sex: Female

DRUGS (3)
  1. CELEBREX [Suspect]
     Indication: ILL-DEFINED DISORDER
     Dates: start: 20020101, end: 20030201
  2. BEXTRA [Suspect]
     Indication: ILL-DEFINED DISORDER
     Dates: start: 20020101, end: 20030201
  3. VIOXX [Suspect]
     Indication: ILL-DEFINED DISORDER
     Dates: start: 20020101

REACTIONS (1)
  - DEEP VEIN THROMBOSIS [None]
